FAERS Safety Report 8281558-1 (Version None)
Quarter: 2012Q2

REPORT INFORMATION
  Report Type: 
  Country: None (occurrence: None)
  Receive Date: 20120410
  Receipt Date: 20120326
  Transmission Date: 20120825
  Serious: Yes (Other)
  Sender: FDA-Public Use
  Company Number: 2012MA004208

PATIENT
  Age: 6 Month
  Sex: Male
  Weight: 3.96 kg

DRUGS (1)
  1. FEVERALL [Suspect]
     Dosage: 300 MG;IV
     Route: 042

REACTIONS (2)
  - ACCIDENTAL OVERDOSE [None]
  - LIVER DISORDER [None]
